FAERS Safety Report 9792508 (Version 1)
Quarter: 2014Q1

REPORT INFORMATION
  Report Type: Report from Study
  Country: NL (occurrence: NL)
  Receive Date: 20140102
  Receipt Date: 20140102
  Transmission Date: 20141002
  Serious: Yes (Other)
  Sender: FDA-Public Use
  Company Number: PHHY2013NL153942

PATIENT
  Sex: Male

DRUGS (4)
  1. ZOMETA [Suspect]
     Indication: PROSTATE CANCER METASTATIC
     Dosage: 4 MG, EVERY FOUR WEEKS
     Route: 042
  2. ZOMETA [Suspect]
     Dosage: UNK UKN, UNK
     Dates: start: 20120117
  3. ZOMETA [Suspect]
     Dosage: UNK UKN, UNK
     Dates: start: 20131129
  4. ZOMETA [Suspect]
     Dosage: UNK UKN, UNK
     Dates: start: 20131230

REACTIONS (1)
  - Diplegia [Not Recovered/Not Resolved]
